FAERS Safety Report 16290697 (Version 1)
Quarter: 2019Q2

REPORT INFORMATION
  Report Type: Spontaneous
  Country: US (occurrence: US)
  Receive Date: 20190509
  Receipt Date: 20190509
  Transmission Date: 20190711
  Serious: Yes (Hospitalization)
  Sender: FDA-Public Use
  Company Number: US-PFIZER INC-2019181099

PATIENT
  Sex: Female

DRUGS (1)
  1. CHAPSTICK 100% NATURAL LIP BUTTER [Suspect]
     Active Substance: SUNFLOWER OIL
     Dosage: UNK

REACTIONS (1)
  - Cerebrovascular accident [Unknown]
